FAERS Safety Report 19899850 (Version 2)
Quarter: 2022Q1

REPORT INFORMATION
  Report Type: Other
  Country: CA (occurrence: CA)
  Receive Date: 20210930
  Receipt Date: 20220323
  Transmission Date: 20220423
  Serious: Yes (Other)
  Sender: FDA-Public Use
  Company Number: CA-APOTEX-2021AP043143

PATIENT
  Age: 59 Year
  Sex: Female

DRUGS (8)
  1. CIPROFLOXACIN [Interacting]
     Active Substance: CIPROFLOXACIN
     Indication: Product used for unknown indication
     Dosage: 500 MILLIGRAM, BID
     Route: 065
  2. LEVOFLOXACIN [Interacting]
     Active Substance: LEVOFLOXACIN
     Indication: Product used for unknown indication
     Dosage: 750 MILLIGRAM, QD
     Route: 065
  3. WARFARIN [Interacting]
     Active Substance: WARFARIN
     Indication: Atrial fibrillation
     Dosage: UNK
     Route: 048
  4. WARFARIN [Interacting]
     Active Substance: WARFARIN
     Indication: Pulmonary embolism
  5. WARFARIN [Interacting]
     Active Substance: WARFARIN
     Indication: Deep vein thrombosis
  6. RIFAMPIN [Interacting]
     Active Substance: RIFAMPIN
     Indication: Infection
     Dosage: 600 MILLIGRAM, QD
     Route: 048
  7. RIFAMPIN [Interacting]
     Active Substance: RIFAMPIN
     Indication: Device related infection
  8. RIFAMPIN [Interacting]
     Active Substance: RIFAMPIN
     Indication: Arthritis infective

REACTIONS (3)
  - International normalised ratio abnormal [Unknown]
  - Drug interaction [Recovered/Resolved]
  - International normalised ratio increased [Recovered/Resolved]
